FAERS Safety Report 5156625-1 (Version None)
Quarter: 2006Q4

REPORT INFORMATION
  Report Type: 
  Country: None (occurrence: None)
  Receive Date: 20061115
  Receipt Date: 20061031
  Transmission Date: 20070319
  Serious: Yes (Hospitalization)
  Sender: FDA-Public Use
  Company Number: 2006-149806-NL

PATIENT
  Age: 22 Year
  Sex: Female
  Weight: 69.4 kg

DRUGS (3)
  1. NUVARING [Suspect]
     Indication: CONTRACEPTION
     Dosage: NI VAGINAL, 3 WKS IN, 1 WK OUT
     Route: 067
  2. BUPROPION HCL [Concomitant]
  3. ACIDOPHILUS [Concomitant]

REACTIONS (4)
  - STAPHYLOCOCCAL INFECTION [None]
  - TREATMENT NONCOMPLIANCE [None]
  - VAGINAL DISCHARGE [None]
  - VAGINAL ODOUR [None]
